FAERS Safety Report 7183026-7 (Version None)
Quarter: 2010Q4

REPORT INFORMATION
  Report Type: 
  Country: None (occurrence: None)
  Receive Date: 20101222
  Receipt Date: 20101217
  Transmission Date: 20110411
  Serious: No
  Sender: FDA-Public Use
  Company Number: US-PFIZER INC-2010174832

PATIENT
  Sex: Female
  Weight: 75 kg

DRUGS (3)
  1. NICOTROL [Suspect]
     Indication: SMOKING CESSATION THERAPY
     Dosage: UNK
     Route: 045
     Dates: start: 20101110, end: 20101201
  2. VERAPAMIL [Concomitant]
     Indication: HYPERTENSION
     Dosage: 30 MG, UNK
  3. METOPROLOL [Concomitant]
     Indication: ARTERIAL OCCLUSIVE DISEASE
     Dosage: 25 MG, DAILY
     Dates: start: 20100101

REACTIONS (1)
  - INSOMNIA [None]
